FAERS Safety Report 11263062 (Version 1)
Quarter: 2015Q3

REPORT INFORMATION
  Report Type: Spontaneous
  Country: BR (occurrence: BR)
  Receive Date: 20150710
  Receipt Date: 20150710
  Transmission Date: 20151125
  Serious: Yes (Life-Threatening)
  Sender: FDA-Public Use
  Company Number: PHHY2015BR082738

PATIENT
  Age: 43 Year
  Sex: Male
  Weight: 144 kg

DRUGS (2)
  1. DIOVAN [Suspect]
     Active Substance: VALSARTAN
     Dosage: 320 MG, QD (IN THE MORNING AT 10 AM)
     Route: 048
     Dates: start: 201501
  2. DIOVAN [Suspect]
     Active Substance: VALSARTAN
     Indication: HYPERTENSION
     Dosage: UNK
     Route: 048

REACTIONS (14)
  - Anxiety [Recovered/Resolved]
  - Arthralgia [Unknown]
  - Blood creatinine increased [Unknown]
  - Hypercalcaemia [Unknown]
  - Protein urine present [Unknown]
  - Wheezing [Recovered/Resolved]
  - Fear [Recovered/Resolved]
  - Myalgia [Unknown]
  - Dyspnoea [Recovered/Resolved]
  - Malaise [Unknown]
  - Palpitations [Recovered/Resolved]
  - Blood testosterone decreased [Unknown]
  - Blood uric acid abnormal [Unknown]
  - Dizziness [Unknown]

NARRATIVE: CASE EVENT DATE: 201501
